FAERS Safety Report 8205518-1 (Version None)
Quarter: 2012Q1

REPORT INFORMATION
  Report Type: 
  Country: None (occurrence: None)
  Receive Date: 20120313
  Receipt Date: 20120102
  Transmission Date: 20120608
  Serious: Yes (Other)
  Sender: FDA-Public Use
  Company Number: PHHY2012KR000461

PATIENT
  Sex: Male
  Weight: 63 kg

DRUGS (3)
  1. EXJADE [Suspect]
     Dosage: 1250 MG DAILY
     Route: 048
  2. EXJADE [Suspect]
     Indication: IRON OVERLOAD
     Dosage: 2500 MG/DAY
     Route: 048
     Dates: start: 20090828
  3. EXJADE [Suspect]
     Dosage: 2500 MG/DAY
     Route: 048

REACTIONS (1)
  - OSTEOPOROSIS [None]
